FAERS Safety Report 25481143 (Version 1)
Quarter: 2025Q2

REPORT INFORMATION
  Report Type: Spontaneous
  Country: IL (occurrence: IL)
  Receive Date: 20250626
  Receipt Date: 20250626
  Transmission Date: 20250717
  Serious: Yes (Other)
  Sender: ROCHE
  Company Number: IL-ROCHE-10000314646

PATIENT
  Age: 48 Year
  Sex: Female

DRUGS (6)
  1. XELODA [Suspect]
     Active Substance: CAPECITABINE
     Indication: Colon cancer
     Route: 065
  2. AVASTIN [Suspect]
     Active Substance: BEVACIZUMAB
     Indication: Colon cancer
     Route: 065
  3. LEUCOVORIN CALCIUM [Concomitant]
     Active Substance: LEUCOVORIN CALCIUM
     Indication: Colon cancer
     Route: 065
  4. IRINOTECAN HYDROCHLORIDE [Concomitant]
     Active Substance: IRINOTECAN HYDROCHLORIDE
     Indication: Colon cancer
     Route: 065
  5. FLUOROURACIL [Concomitant]
     Active Substance: FLUOROURACIL
     Indication: Colon cancer
     Route: 065
  6. OXALIPLATIN [Concomitant]
     Active Substance: OXALIPLATIN
     Indication: Colon cancer
     Route: 065

REACTIONS (15)
  - Dysphagia [Unknown]
  - Vomiting [Unknown]
  - Adenocarcinoma [Unknown]
  - Hypoaesthesia [Unknown]
  - Neuropathy peripheral [Unknown]
  - Adenocarcinoma metastatic [Unknown]
  - Diarrhoea [Unknown]
  - Metastases to ovary [Unknown]
  - Hypersensitivity [Unknown]
  - Liver disorder [Unknown]
  - Vaginal haemorrhage [Unknown]
  - Metastases to lung [Unknown]
  - Cholelithiasis [Unknown]
  - Metastases to liver [Unknown]
  - Metastases to lung [Unknown]
